FAERS Safety Report 8158845-0 (Version None)
Quarter: 2012Q1

REPORT INFORMATION
  Report Type: 
  Country: None (occurrence: None)
  Receive Date: 20120223
  Receipt Date: 20120217
  Transmission Date: 20120608
  Serious: Yes (Other)
  Sender: FDA-Public Use
  Company Number: US-SHIRE-ALL1-2011-04909

PATIENT
  Sex: Female
  Weight: 47.982 kg

DRUGS (5)
  1. INTUNIV [Suspect]
     Dosage: 1 MG, 1X/DAY:QD
     Route: 048
     Dates: start: 20110101
  2. DORYX                              /00055701/ [Concomitant]
     Indication: ACNE
     Dosage: 150 MG, 1X/DAY:QD
     Route: 048
     Dates: start: 20110801
  3. INTUNIV [Suspect]
     Indication: DISTURBANCE IN ATTENTION
     Dosage: 2 MG, 1X/DAY:QD
     Route: 048
     Dates: start: 20111031, end: 20110101
  4. INTUNIV [Suspect]
     Indication: ATTENTION DEFICIT/HYPERACTIVITY DISORDER
     Dosage: 3 MG, 1X/DAY:QD
     Route: 048
     Dates: start: 20110101, end: 20110101
  5. INTUNIV [Suspect]
     Dosage: 1 MG, 1X/DAY:QD
     Route: 048
     Dates: start: 20111001, end: 20111001

REACTIONS (12)
  - INAPPROPRIATE SCHEDULE OF DRUG ADMINISTRATION [None]
  - SYNCOPE [None]
  - HYPOVOLAEMIA [None]
  - LIP SWELLING [None]
  - STARING [None]
  - HYPOTENSION [None]
  - ABDOMINAL PAIN UPPER [None]
  - DIZZINESS [None]
  - HEADACHE [None]
  - HAEMOPTYSIS [None]
  - HAEMORRHAGE [None]
  - DISTURBANCE IN ATTENTION [None]
